FAERS Safety Report 15089586 (Version 1)
Quarter: 2018Q2

REPORT INFORMATION
  Report Type: Spontaneous
  Country: IT (occurrence: IT)
  Receive Date: 20180629
  Receipt Date: 20180629
  Transmission Date: 20180711
  Serious: Yes (Other)
  Sender: FDA-Public Use
  Company Number: IT-TEVA-2018-IT-916822

PATIENT
  Age: 74 Year
  Sex: Female

DRUGS (4)
  1. SOTALOL. [Suspect]
     Active Substance: SOTALOL
     Indication: ATRIAL FIBRILLATION
     Dosage: 80 MILLIGRAM DAILY;
     Route: 048
     Dates: start: 20170413, end: 20180215
  2. ZESTORETIC 20 MG + 12,5 MG COMPRESSE [Concomitant]
     Indication: HYPERTENSION
     Route: 048
  3. TAPAZOLE [Concomitant]
     Active Substance: METHIMAZOLE
     Indication: HYPERTHYROIDISM
     Route: 048
  4. ELIQUIS [Concomitant]
     Active Substance: APIXABAN
     Route: 048

REACTIONS (1)
  - Atrioventricular block first degree [Recovering/Resolving]

NARRATIVE: CASE EVENT DATE: 20180215
